FAERS Safety Report 22062761 (Version 3)
Quarter: 2023Q2

REPORT INFORMATION
  Report Type: Spontaneous
  Country: US (occurrence: US)
  Receive Date: 20230306
  Receipt Date: 20230404
  Transmission Date: 20230721
  Serious: No
  Sender: FDA-Public Use
  Company Number: US-AMGEN-USASP2023036586

PATIENT
  Sex: Male

DRUGS (1)
  1. REPATHA [Suspect]
     Active Substance: EVOLOCUMAB
     Indication: Product used for unknown indication
     Dosage: 140 MILLIGRAM
     Route: 065
     Dates: start: 202301

REACTIONS (5)
  - Low density lipoprotein decreased [Unknown]
  - Blood cholesterol decreased [Unknown]
  - Myalgia [Unknown]
  - Bone pain [Unknown]
  - Blood glucose increased [Unknown]

NARRATIVE: CASE EVENT DATE: 20230101
